FAERS Safety Report 12854825 (Version 1)
Quarter: 2016Q4

REPORT INFORMATION
  Report Type: Spontaneous
  Country: US (occurrence: US)
  Receive Date: 20161017
  Receipt Date: 20161017
  Transmission Date: 20170207
  Serious: Yes (Hospitalization)
  Sender: FDA-Public Use
  Company Number: US-BAYER-2016-178087

PATIENT
  Age: 60 Year
  Sex: Male

DRUGS (3)
  1. XARELTO [Interacting]
     Active Substance: RIVAROXABAN
     Indication: KNEE ARTHROPLASTY
     Dosage: 10 MG, UNK
     Route: 048
     Dates: start: 20150819, end: 20150828
  2. XARELTO [Interacting]
     Active Substance: RIVAROXABAN
     Indication: THROMBOSIS PROPHYLAXIS
  3. ACETYLSALICYLIC ACID({=100 MG) [Suspect]
     Active Substance: ASPIRIN
     Indication: PRODUCT USED FOR UNKNOWN INDICATION
     Dosage: UNK
     Route: 065
     Dates: end: 201508

REACTIONS (1)
  - Haemorrhage [Recovering/Resolving]

NARRATIVE: CASE EVENT DATE: 20150828
